FAERS Safety Report 24589457 (Version 3)
Quarter: 2025Q1

REPORT INFORMATION
  Report Type: Spontaneous
  Country: JP (occurrence: JP)
  Receive Date: 20241107
  Receipt Date: 20250128
  Transmission Date: 20250409
  Serious: Yes (Other)
  Sender: BAYER HEALTHCARE PHARMACEUTICALS INC.
  Company Number: JP-BAYER-2024A158337

PATIENT
  Age: 72 Year
  Sex: Male

DRUGS (3)
  1. NUBEQA [Suspect]
     Active Substance: DAROLUTAMIDE
     Indication: Hormone-dependent prostate cancer
  2. DOCETAXEL [Suspect]
     Active Substance: DOCETAXEL
     Indication: Hormone-dependent prostate cancer
  3. PEGFILGRASTIM [Concomitant]
     Active Substance: PEGFILGRASTIM

REACTIONS (4)
  - Neuropathy peripheral [Not Recovered/Not Resolved]
  - Hypoaesthesia [None]
  - Palmar-plantar erythrodysaesthesia syndrome [None]
  - Neutrophil count decreased [None]

NARRATIVE: CASE EVENT DATE: 20240315
